FAERS Safety Report 12484588 (Version 1)
Quarter: 2016Q2

REPORT INFORMATION
  Report Type: Spontaneous
  Country: US (occurrence: None)
  Receive Date: 20160620
  Receipt Date: 20160620
  Transmission Date: 20160815
  Serious: Yes (Other)
  Sender: FDA-Public Use
  Company Number: None

PATIENT
  Age: 27 Year
  Sex: Female
  Weight: 68.04 kg

DRUGS (3)
  1. WELLBUTRIN XL [Concomitant]
     Active Substance: BUPROPION HYDROCHLORIDE
  2. PARAGARD T 380A [Suspect]
     Active Substance: COPPER
  3. PRENATAL VITAMINS [Concomitant]
     Active Substance: VITAMINS

REACTIONS (4)
  - Embedded device [None]
  - Pregnancy with contraceptive device [None]
  - High risk pregnancy [None]
  - Exposure during pregnancy [None]

NARRATIVE: CASE EVENT DATE: 20160615
